FAERS Safety Report 8790954 (Version 1)
Quarter: 2012Q4

REPORT INFORMATION
  Report Type: Spontaneous
  Country: IL (occurrence: None)
  Receive Date: 20120910
  Receipt Date: 20120910
  Transmission Date: 20130627
  Serious: Yes (Other)
  Sender: FDA-Public Use
  Company Number: 2012ST000659

PATIENT
  Age: 49 Year
  Sex: Female

DRUGS (9)
  1. ABELCET [Suspect]
     Indication: ENDOCARDITIS BACTERIAL
     Route: 042
     Dates: start: 20120807, end: 20120808
  2. POLYMYXIN B [Concomitant]
  3. ONDANSETRON [Concomitant]
  4. OMEPRAZOLE [Concomitant]
  5. DIPYRONE [Concomitant]
  6. VANCOMYCIN [Concomitant]
  7. MEROPENEM [Concomitant]
  8. MORPHINE [Concomitant]
  9. FUROSEMIDE [Concomitant]

REACTIONS (3)
  - Tachycardia [None]
  - Infusion related reaction [None]
  - Cardio-respiratory arrest [None]
